FAERS Safety Report 6349651-8 (Version None)
Quarter: 2009Q3

REPORT INFORMATION
  Report Type: 
  Country: None (occurrence: None)
  Receive Date: 20090911
  Receipt Date: 20090825
  Transmission Date: 20100115
  Serious: Yes (Other)
  Sender: FDA-Public Use
  Company Number: US-BAYER-200912935NA

PATIENT
  Age: 50 Year
  Sex: Female
  Weight: 65 kg

DRUGS (10)
  1. MAGNEVIST [Suspect]
     Indication: FISTULOGRAM
  2. OMNISCAN [Suspect]
     Indication: FISTULOGRAM
     Dosage: AS USED: 55 ML
     Dates: start: 20051220, end: 20051220
  3. OMNISCAN [Suspect]
     Dosage: AS USED: 55 ML
     Dates: start: 20051227, end: 20051227
  4. OPTIMARK [Suspect]
     Indication: FISTULOGRAM
  5. MULTIHANCE [Suspect]
     Indication: FISTULOGRAM
  6. PROHANCE [Suspect]
     Indication: FISTULOGRAM
  7. FENTANYL [Concomitant]
     Indication: SEDATIVE THERAPY
     Route: 042
     Dates: start: 20051220, end: 20051220
  8. FENTANYL [Concomitant]
     Route: 042
     Dates: start: 20051227, end: 20051227
  9. NITROGLYCERIN [Concomitant]
     Indication: VASOSPASM
     Route: 042
     Dates: start: 20051220, end: 20051220
  10. VERSED [Concomitant]
     Indication: SEDATIVE THERAPY
     Route: 042
     Dates: start: 20051227, end: 20051227

REACTIONS (12)
  - EMOTIONAL DISTRESS [None]
  - ERYTHEMA [None]
  - FIBROSIS [None]
  - NEPHROGENIC SYSTEMIC FIBROSIS [None]
  - OEDEMA PERIPHERAL [None]
  - PAIN [None]
  - PAIN IN EXTREMITY [None]
  - PEAU D'ORANGE [None]
  - PRURITUS [None]
  - RASH [None]
  - SKIN DISCOLOURATION [None]
  - SKIN EXFOLIATION [None]
